FAERS Safety Report 7464192-2 (Version None)
Quarter: 2011Q2

REPORT INFORMATION
  Report Type: 
  Country: None (occurrence: None)
  Receive Date: 20110506
  Receipt Date: 20110427
  Transmission Date: 20111010
  Serious: Yes (Other)
  Sender: FDA-Public Use
  Company Number: GB-ASTRAZENECA-2011SE21620

PATIENT
  Age: 60 Year
  Sex: Male

DRUGS (1)
  1. OMEPRAZOLE [Suspect]
     Route: 048
     Dates: start: 20010101

REACTIONS (5)
  - GASTROINTESTINAL DISORDER [None]
  - DYSGEUSIA [None]
  - DYSPEPSIA [None]
  - RASH [None]
  - DRUG INEFFECTIVE [None]
